FAERS Safety Report 15221246 (Version 2)
Quarter: 2018Q4

REPORT INFORMATION
  Report Type: Spontaneous
  Country: US (occurrence: US)
  Receive Date: 20180731
  Receipt Date: 20181102
  Transmission Date: 20190204
  Serious: Yes (Hospitalization, Other)
  Sender: FDA-Public Use
  Company Number: US-PFIZER INC-2018305820

PATIENT
  Age: 77 Year
  Sex: Female
  Weight: 56 kg

DRUGS (2)
  1. SINGULAIR [Concomitant]
     Active Substance: MONTELUKAST SODIUM
     Dosage: 10 MG, 1X/DAY
     Route: 048
  2. XELJANZ XR [Suspect]
     Active Substance: TOFACITINIB CITRATE
     Indication: RHEUMATOID ARTHRITIS
     Dosage: 11 MG, DAILY (ONE LITTLE PINK PILL)
     Route: 048
     Dates: start: 20180901

REACTIONS (4)
  - Vomiting [Unknown]
  - Feeling abnormal [Unknown]
  - Malaise [Unknown]
  - Pneumonia [Unknown]

NARRATIVE: CASE EVENT DATE: 201809
